FAERS Safety Report 8377628-X (Version None)
Quarter: 2012Q2

REPORT INFORMATION
  Report Type: 
  Country: None (occurrence: None)
  Receive Date: 20120522
  Receipt Date: 20120516
  Transmission Date: 20120825
  Serious: Yes (Hospitalization, Other)
  Sender: FDA-Public Use
  Company Number: US-BAYER-2012-049597

PATIENT
  Age: 22 Year
  Sex: Female
  Weight: 98 kg

DRUGS (11)
  1. KLONOPIN [Concomitant]
     Indication: DEPRESSION
  2. LYRICA [Concomitant]
     Indication: MUSCULOSKELETAL PAIN
  3. DILAUDID [Concomitant]
     Indication: FIBROMYALGIA
     Dosage: UNK UNK, PRN
  4. ZOLOFT [Concomitant]
     Indication: DEPRESSION
  5. NSAID'S [Concomitant]
     Indication: MUSCULOSKELETAL PAIN
  6. ZOLOFT [Concomitant]
     Indication: VOMITING
  7. ZOLOFT [Concomitant]
     Indication: NAUSEA
  8. DILAUDID [Concomitant]
     Indication: VOMITING
  9. BENTYL [Concomitant]
     Indication: CYCLIC VOMITING SYNDROME
  10. YAZ [Suspect]
     Indication: CONTRACEPTION
     Dosage: UNK
  11. DILAUDID [Concomitant]
     Indication: NAUSEA

REACTIONS (2)
  - PULMONARY EMBOLISM [None]
  - CHOLECYSTITIS CHRONIC [None]
